FAERS Safety Report 6408573-4 (Version None)
Quarter: 2009Q4

REPORT INFORMATION
  Report Type: 
  Country: None (occurrence: None)
  Receive Date: 20091019
  Receipt Date: 20091008
  Transmission Date: 20100525
  Serious: Yes (Hospitalization, Other)
  Sender: FDA-Public Use
  Company Number: 2009US003746

PATIENT
  Age: 63 Year
  Sex: Female

DRUGS (20)
  1. PROGRAF [Suspect]
     Indication: HEART TRANSPLANT
  2. REVLIMID [Suspect]
     Indication: AMYLOIDOSIS
     Dosage: 15 MG, UID/QD, ORAL; 25 MG, UID/QD, ORAL; 2 DAYS ON, 1 DAY OFF, ORAL
     Route: 048
     Dates: start: 20090402, end: 20090401
  3. REVLIMID [Suspect]
     Indication: AMYLOIDOSIS
     Dosage: 15 MG, UID/QD, ORAL; 25 MG, UID/QD, ORAL; 2 DAYS ON, 1 DAY OFF, ORAL
     Route: 048
     Dates: start: 20090702, end: 20090801
  4. REVLIMID [Suspect]
     Indication: AMYLOIDOSIS
     Dosage: 15 MG, UID/QD, ORAL; 25 MG, UID/QD, ORAL; 2 DAYS ON, 1 DAY OFF, ORAL
     Route: 048
     Dates: start: 20090106
  5. BACTRIM [Suspect]
     Indication: DRUG USE FOR UNKNOWN INDICATION
  6. VALGANCICLOVIR HCL [Suspect]
     Indication: DRUG USE FOR UNKNOWN INDICATION
  7. CELLCEPT [Suspect]
     Indication: DRUG USE FOR UNKNOWN INDICATION
  8. POTASSIUM (POTASSIUM) [Concomitant]
  9. SYNTHROID [Concomitant]
  10. DEXAMETHASONE [Concomitant]
  11. MULTI-VITAMINS [Concomitant]
  12. MAG-OX (MAGNESIUM OXIDE) [Concomitant]
  13. VITAMIN D [Concomitant]
  14. NEXIUM (ESCOMEPRAZOLE SODIUM) [Concomitant]
  15. ASPIRIN [Concomitant]
  16. PREDNISONE TAB [Concomitant]
  17. LASIX [Concomitant]
  18. VALCYTE [Concomitant]
  19. OSCAL [Concomitant]
  20. PROSTATIN (HERBAL EXTRACT NOS) [Concomitant]

REACTIONS (4)
  - BLOOD COUNT ABNORMAL [None]
  - HYPOAESTHESIA [None]
  - NEUTROPENIA [None]
  - WHITE BLOOD CELL COUNT DECREASED [None]
